FAERS Safety Report 15760207 (Version 2)
Quarter: 2019Q1

REPORT INFORMATION
  Report Type: Spontaneous
  Country: RO (occurrence: RO)
  Receive Date: 20181226
  Receipt Date: 20190118
  Transmission Date: 20190417
  Serious: Yes (Death)
  Sender: FDA-Public Use
  Company Number: RO-PFIZER INC-2018523985

PATIENT
  Age: 66 Year
  Sex: Male
  Weight: 72 kg

DRUGS (7)
  1. EUTHYROX [Concomitant]
     Active Substance: LEVOTHYROXINE SODIUM
     Dosage: 100 UG, 1X/DAY (MORNING)
  2. ATACAND [Concomitant]
     Active Substance: CANDESARTAN CILEXETIL
     Dosage: 8 MG, 1X/DAY (EVENING)
  3. TERTENSIF [Concomitant]
     Active Substance: INDAPAMIDE
     Dosage: 2.5 MG, 1X/DAY (MORNING)
  4. NORVASC [Concomitant]
     Active Substance: AMLODIPINE BESYLATE
     Dosage: 5 MG, 1X/DAY (EVENING)
  5. ZOLEDRONIC ACID. [Concomitant]
     Active Substance: ZOLEDRONIC ACID
     Dosage: 4MG/100ML SOLUTION FOR INFUSION
  6. SUTENT [Suspect]
     Active Substance: SUNITINIB MALATE
     Indication: RENAL CANCER METASTATIC
     Dosage: 37.5 MG, CYCLIC, 28 DAYS OF TREATMENT ADMINISTRATION AND 14 DAYS PAUSE
     Dates: start: 20170228, end: 20181210
  7. SUTENT [Suspect]
     Active Substance: SUNITINIB MALATE
     Indication: LARYNGEAL NEOPLASM

REACTIONS (2)
  - Cardio-respiratory arrest [Fatal]
  - Renal impairment [Fatal]

NARRATIVE: CASE EVENT DATE: 20181210
